FAERS Safety Report 24178903 (Version 1)
Quarter: 2024Q3

REPORT INFORMATION
  Report Type: Spontaneous
  Country: FR (occurrence: FR)
  Receive Date: 20240806
  Receipt Date: 20240806
  Transmission Date: 20241017
  Serious: Yes (Other)
  Sender: RANBAXY
  Company Number: FR-AFSSAPS-MP2024000714

PATIENT
  Age: 15 Year
  Sex: Female
  Weight: 53.4 kg

DRUGS (3)
  1. SERTRALINE [Suspect]
     Active Substance: SERTRALINE HYDROCHLORIDE
     Indication: Selective eating disorder
     Dosage: STARTED AT 25 MG/DAY AND STEADILY INCREASED TO 75 MG/DAY ON 04/29
     Route: 065
     Dates: start: 20240214
  2. CYAMEMAZINE [Concomitant]
     Active Substance: CYAMEMAZINE
     Indication: Selective eating disorder
     Dosage: UNK, PRN (IF NECESSARY)
     Route: 065
     Dates: start: 202312
  3. OLANZAPINE [Concomitant]
     Active Substance: OLANZAPINE
     Indication: Selective eating disorder
     Dosage: 5 MG/D, INCREASED TO 7.5 MG/D AND 5 MG/D FROM THE END OF FEBRUARY 2024
     Route: 065
     Dates: start: 202310, end: 20240405

REACTIONS (1)
  - Eyelid myoclonus [Not Recovered/Not Resolved]

NARRATIVE: CASE EVENT DATE: 20240216
